FAERS Safety Report 8020623-0 (Version None)
Quarter: 2012Q1

REPORT INFORMATION
  Report Type: 
  Country: None (occurrence: None)
  Receive Date: 20120103
  Receipt Date: 20111223
  Transmission Date: 20120608
  Serious: Yes (Hospitalization)
  Sender: FDA-Public Use
  Company Number: US-ASTRAZENECA-2011SE54762

PATIENT
  Age: 65 Year
  Sex: Female

DRUGS (10)
  1. DEPAKOTE [Concomitant]
  2. SEROQUEL [Suspect]
     Route: 048
  3. ATIVAN [Concomitant]
  4. SEROQUEL [Suspect]
     Route: 048
  5. PREDNISONE TAB [Concomitant]
  6. SEROQUEL [Suspect]
     Indication: BIPOLAR DISORDER
     Route: 048
  7. SEROQUEL [Suspect]
     Route: 048
  8. LAMICTAL [Concomitant]
  9. AMBIEN [Concomitant]
  10. PREVACID [Concomitant]

REACTIONS (11)
  - MENTAL DISORDER [None]
  - MALAISE [None]
  - OVERDOSE [None]
  - HEAD INJURY [None]
  - FALL [None]
  - CONTUSION [None]
  - SOMNOLENCE [None]
  - WRONG TECHNIQUE IN DRUG USAGE PROCESS [None]
  - DRUG LEVEL INCREASED [None]
  - BIPOLAR I DISORDER [None]
  - BLOOD GLUCOSE INCREASED [None]
